FAERS Safety Report 4675829-5 (Version None)
Quarter: 2005Q2

REPORT INFORMATION
  Report Type: 
  Country: None (occurrence: None)
  Receive Date: 20050527
  Receipt Date: 20040401
  Transmission Date: 20051028
  Serious: Yes (Hospitalization)
  Sender: FDA-Public Use
  Company Number: MX-BOEHRINGER INGELHEIM PHARMACEUTICALS, INC.-2004-BP-02571MX

PATIENT
  Age: 77 Year
  Sex: Male
  Weight: 77 kg

DRUGS (1)
  1. SECOTEX CAPSULES 0.4MG [Suspect]
     Indication: BENIGN PROSTATIC HYPERPLASIA
     Route: 048
     Dates: start: 20031120, end: 20040217

REACTIONS (4)
  - BLADDER CANCER [None]
  - DRUG INEFFECTIVE [None]
  - HAEMATURIA [None]
  - PROSTATE CANCER [None]
